FAERS Safety Report 5420462-0 (Version None)
Quarter: 2007Q3

REPORT INFORMATION
  Report Type: 
  Country: None (occurrence: None)
  Receive Date: 20070821
  Receipt Date: 20070810
  Transmission Date: 20080115
  Serious: Yes (Hospitalization, Other)
  Sender: FDA-Public Use
  Company Number: PHBS2007GR13545

PATIENT
  Age: 73 Year
  Sex: Male

DRUGS (2)
  1. GLEEVEC [Suspect]
     Indication: GASTROINTESTINAL STROMAL TUMOUR
     Dosage: 400 MG/DAY
     Route: 065
  2. LEVOTHYROXINE SODIUM [Suspect]
     Indication: PRIMARY HYPOTHYROIDISM
     Dosage: 0.1 MG/DAY
     Route: 065

REACTIONS (8)
  - BLOOD CREATININE INCREASED [None]
  - BLOOD THYROID STIMULATING HORMONE DECREASED [None]
  - DERMATITIS EXFOLIATIVE GENERALISED [None]
  - DRUG INTERACTION [None]
  - HAEMATOCRIT DECREASED [None]
  - PRIMARY HYPOTHYROIDISM [None]
  - PRURITUS [None]
  - THYROXINE INCREASED [None]
